FAERS Safety Report 11856666 (Version 2)
Quarter: 2016Q2

REPORT INFORMATION
  Report Type: Spontaneous
  Country: FR (occurrence: FR)
  Receive Date: 20151221
  Receipt Date: 20160408
  Transmission Date: 20160815
  Serious: Yes (Hospitalization, Other)
  Sender: FDA-Public Use
  Company Number: FR-SA-2015SA213292

PATIENT
  Sex: Female

DRUGS (8)
  1. GLUCIDION [Concomitant]
     Active Substance: GLUCOSE, LIQUID\POTASSIUM CHLORIDE\SODIUM CHLORIDE
     Dates: start: 20151127
  2. METHYLPREDNISOLONE. [Concomitant]
     Active Substance: METHYLPREDNISOLONE
     Route: 042
     Dates: start: 201512
  3. DONORMYL [Concomitant]
     Active Substance: DOXYLAMINE SUCCINATE
  4. SOLUPRED [Concomitant]
     Active Substance: PREDNISOLONE
     Dosage: 3 PER DAY
     Route: 048
     Dates: start: 20151208
  5. HIDONAC [Concomitant]
     Active Substance: ACETYLCYSTEINE
     Dates: start: 20151126, end: 20151203
  6. AUBAGIO [Suspect]
     Active Substance: TERIFLUNOMIDE
     Indication: MULTIPLE SCLEROSIS
     Route: 048
     Dates: start: 201409, end: 201509
  7. PARACETAMOL [Concomitant]
     Active Substance: ACETAMINOPHEN
  8. VITAMIN K [Concomitant]
     Active Substance: PHYTONADIONE
     Dates: start: 20151127

REACTIONS (6)
  - Cell death [Unknown]
  - Multiple sclerosis relapse [Unknown]
  - Hepatic lesion [Unknown]
  - Abdominal discomfort [Unknown]
  - Hepatitis acute [Recovering/Resolving]
  - Asthenia [Unknown]

NARRATIVE: CASE EVENT DATE: 2015
